FAERS Safety Report 18774347 (Version 1)
Quarter: 2021Q1

REPORT INFORMATION
  Report Type: Spontaneous
  Country: US (occurrence: US)
  Receive Date: 20210122
  Receipt Date: 20210122
  Transmission Date: 20210419
  Serious: Yes (Other)
  Sender: FDA-Public Use
  Company Number: US-TEVA-2021-US-1870247

PATIENT
  Age: 42 Year
  Sex: Female

DRUGS (1)
  1. AUSTEDO [Suspect]
     Active Substance: DEUTETRABENAZINE
     Indication: TARDIVE DYSKINESIA
     Route: 065
     Dates: start: 20201102

REACTIONS (5)
  - Road traffic accident [Unknown]
  - Brain injury [Unknown]
  - Somnolence [Unknown]
  - Medical counselling [Unknown]
  - Speech disorder [Unknown]

NARRATIVE: CASE EVENT DATE: 202101
